FAERS Safety Report 5142424-3 (Version None)
Quarter: 2006Q4

REPORT INFORMATION
  Report Type: 
  Country: None (occurrence: None)
  Receive Date: 20061102
  Receipt Date: 20061023
  Transmission Date: 20070319
  Serious: Yes (Hospitalization)
  Sender: FDA-Public Use
  Company Number: CA-ELI_LILLY_AND_COMPANY-CA200610004430

PATIENT
  Age: 69 Year
  Sex: Female

DRUGS (4)
  1. FORTEO [Suspect]
     Indication: OSTEOPOROSIS
     Dosage: 20 UG, UNKNOWN
     Dates: start: 20060214, end: 20060801
  2. FORTEO [Suspect]
     Dosage: 20 UG, OTHER
  3. CALCIUM [Concomitant]
  4. VITAMIN D [Concomitant]

REACTIONS (6)
  - BALANCE DISORDER [None]
  - DYSARTHRIA [None]
  - GASTROINTESTINAL HAEMORRHAGE [None]
  - INCORRECT DOSE ADMINISTERED [None]
  - PULMONARY FIBROSIS [None]
  - SENSATION OF HEAVINESS [None]
